FAERS Safety Report 25162115 (Version 1)
Quarter: 2025Q2

REPORT INFORMATION
  Report Type: Spontaneous
  Country: US (occurrence: US)
  Receive Date: 20250404
  Receipt Date: 20250404
  Transmission Date: 20250717
  Serious: No
  Sender: SANOFI AVENTIS
  Company Number: US-SA-2025SA095821

PATIENT
  Sex: Male
  Weight: 24.9 kg

DRUGS (6)
  1. DUPIXENT [Suspect]
     Active Substance: DUPILUMAB
     Indication: Dermatitis allergic
     Dosage: 300MG Q4W
     Route: 058
     Dates: start: 202404
  2. DUPIXENT [Suspect]
     Active Substance: DUPILUMAB
     Indication: Dermatitis atopic
  3. Children^s multivitamin [Concomitant]
  4. SODIUM FLUORIDE [Concomitant]
     Active Substance: SODIUM FLUORIDE
  5. BENADRYL ALLERGY PLUS CONGESTION [Concomitant]
     Active Substance: DIPHENHYDRAMINE HYDROCHLORIDE\PHENYLEPHRINE HYDROCHLORIDE
  6. LORATADINE D [Concomitant]
     Active Substance: LORATADINE\PSEUDOEPHEDRINE SULFATE

REACTIONS (4)
  - Pruritus [Unknown]
  - Dermatitis allergic [Unknown]
  - Condition aggravated [Unknown]
  - Dermatitis atopic [Unknown]
